FAERS Safety Report 12637842 (Version 1)
Quarter: 2016Q3

REPORT INFORMATION
  Report Type: Spontaneous
  Country: US (occurrence: US)
  Receive Date: 20160809
  Receipt Date: 20160809
  Transmission Date: 20161109
  Serious: No
  Sender: FDA-Public Use
  Company Number: US-PFIZER INC-2016346201

PATIENT
  Age: 49 Year
  Sex: Male
  Weight: 104 kg

DRUGS (1)
  1. VIAGRA [Suspect]
     Active Substance: SILDENAFIL CITRATE
     Indication: ERECTILE DYSFUNCTION
     Dosage: 1 DF, 1X/DAY, ^1 PILL BY MOUTH A DAY^
     Route: 048
     Dates: start: 201602

REACTIONS (1)
  - Erection increased [Unknown]

NARRATIVE: CASE EVENT DATE: 2016
